FAERS Safety Report 4342673-8 (Version None)
Quarter: 2004Q2

REPORT INFORMATION
  Report Type: 
  Country: None (occurrence: None)
  Receive Date: 20040420
  Receipt Date: 20040420
  Transmission Date: 20050107
  Serious: Yes (Hospitalization)
  Sender: FDA-Public Use
  Company Number: None

PATIENT
  Age: 52 Year
  Sex: Male
  Weight: 71.21 kg

DRUGS (1)
  1. DEPAKOTE [Suspect]
     Indication: SCHIZOAFFECTIVE DISORDER
     Dosage: 750 MG DAILY ORAL
     Route: 048
     Dates: start: 20040220, end: 20040404

REACTIONS (2)
  - PLATELET COUNT DECREASED [None]
  - PNEUMONIA [None]
